FAERS Safety Report 25828064 (Version 1)
Quarter: 2025Q3

REPORT INFORMATION
  Report Type: Spontaneous
  Country: US (occurrence: US)
  Receive Date: 20250921
  Receipt Date: 20250921
  Transmission Date: 20251020
  Serious: Yes (Hospitalization, Other)
  Sender: SANOFI AVENTIS
  Company Number: US-SA-2025SA277905

PATIENT
  Sex: Female

DRUGS (17)
  1. DUPIXENT [Suspect]
     Active Substance: DUPILUMAB
     Indication: Anxiety disorder
     Dosage: 300 MG, QOW
     Route: 058
  2. VITAMIN D [Concomitant]
     Active Substance: VITAMIN D NOS
  3. ALBUTEROL SULFATE [Concomitant]
     Active Substance: ALBUTEROL SULFATE
  4. ARFORMOTEROL [Concomitant]
     Active Substance: ARFORMOTEROL
  5. AZELASTINE HYDROCHLORIDE [Concomitant]
     Active Substance: AZELASTINE HYDROCHLORIDE
  6. BUDESONIDE [Concomitant]
     Active Substance: BUDESONIDE
  7. CLONAZEPAM [Concomitant]
     Active Substance: CLONAZEPAM
  8. DULOXETINE HYDROCHLORIDE [Concomitant]
     Active Substance: DULOXETINE HYDROCHLORIDE
  9. IPRATROPIUM [Concomitant]
     Active Substance: IPRATROPIUM
  10. IRON [Concomitant]
     Active Substance: IRON
  11. MOMETASONE FUROATE [Concomitant]
     Active Substance: MOMETASONE FUROATE
  12. MONTELUKAST [Concomitant]
     Active Substance: MONTELUKAST
  13. PREDNISONE [Concomitant]
     Active Substance: PREDNISONE
  14. PREDNISONE [Concomitant]
     Active Substance: PREDNISONE
  15. ROFLUMILAST [Concomitant]
     Active Substance: ROFLUMILAST
  16. ROSUVASTATIN [Concomitant]
     Active Substance: ROSUVASTATIN
  17. VITAMIN B12 [Concomitant]
     Active Substance: CYANOCOBALAMIN

REACTIONS (2)
  - Pneumonia [Recovered/Resolved]
  - Product use in unapproved indication [Unknown]
